FAERS Safety Report 13840176 (Version 1)
Quarter: 2017Q3

REPORT INFORMATION
  Report Type: Spontaneous
  Country: US (occurrence: US)
  Receive Date: 20170807
  Receipt Date: 20170807
  Transmission Date: 20171127
  Serious: Yes (Disabling)
  Sender: FDA-Public Use
  Company Number: None

PATIENT
  Age: 46 Year
  Sex: Female
  Weight: 63 kg

DRUGS (3)
  1. NATURE-THROID [Concomitant]
     Active Substance: THYROID, PORCINE
  2. WELLBUTRIN [Concomitant]
     Active Substance: BUPROPION HYDROCHLORIDE
  3. LEVAQUIN [Suspect]
     Active Substance: LEVOFLOXACIN
     Indication: LYME DISEASE
     Dosage: ?          QUANTITY:1 TABLET(S);?
     Route: 048
     Dates: start: 20170717, end: 20170804

REACTIONS (8)
  - Tendon pain [None]
  - Gait disturbance [None]
  - Limb discomfort [None]
  - Exercise tolerance decreased [None]
  - Arthralgia [None]
  - Headache [None]
  - Discomfort [None]
  - Myalgia [None]

NARRATIVE: CASE EVENT DATE: 20170719
